FAERS Safety Report 7972940-8 (Version None)
Quarter: 2011Q4

REPORT INFORMATION
  Report Type: 
  Country: None (occurrence: None)
  Receive Date: 20111213
  Receipt Date: 20111202
  Transmission Date: 20120403
  Serious: Yes (Hospitalization)
  Sender: FDA-Public Use
  Company Number: JP-AMGEN-JPNCT2010007480

PATIENT
  Age: 64 Year
  Sex: Male
  Weight: 48 kg

DRUGS (6)
  1. LOCOID [Concomitant]
     Indication: PROPHYLAXIS
     Route: 062
     Dates: start: 20100720, end: 20100907
  2. PANITUMUMAB [Suspect]
     Indication: COLORECTAL CANCER
     Dosage: 6 MG/KG, Q2WK
     Route: 041
     Dates: start: 20100720, end: 20100907
  3. HIRUDOID [Concomitant]
     Indication: PROPHYLAXIS
     Route: 062
     Dates: start: 20100720, end: 20100907
  4. LOPERAMIDE HCL [Concomitant]
     Indication: PROPHYLAXIS
     Route: 048
     Dates: start: 20100720
  5. MINOCYCLINE HCL [Suspect]
     Indication: DERMATITIS ACNEIFORM
     Route: 048
     Dates: start: 20100803, end: 20100816
  6. COLONEL [Concomitant]
     Indication: PROPHYLAXIS
     Route: 048
     Dates: start: 20100720

REACTIONS (5)
  - NAUSEA [None]
  - METASTASES TO BONE [None]
  - DERMATITIS ACNEIFORM [None]
  - HYPOMAGNESAEMIA [None]
  - HYPERBILIRUBINAEMIA [None]
